FAERS Safety Report 8482091-4 (Version None)
Quarter: 2012Q3

REPORT INFORMATION
  Report Type: 
  Country: None (occurrence: None)
  Receive Date: 20120702
  Receipt Date: 20120625
  Transmission Date: 20120928
  Serious: Yes (Disabling, Other)
  Sender: FDA-Public Use
  Company Number: US-PFIZER INC-2011153142

PATIENT
  Sex: Female

DRUGS (1)
  1. CHANTIX [Suspect]
     Indication: SMOKING CESSATION THERAPY
     Dosage: UNK
     Route: 048
     Dates: start: 20070601, end: 20091101

REACTIONS (9)
  - DIZZINESS [None]
  - BALANCE DISORDER [None]
  - RESTLESS LEGS SYNDROME [None]
  - LOSS OF CONSCIOUSNESS [None]
  - BACK PAIN [None]
  - MULTIPLE INJURIES [None]
  - VISUAL IMPAIRMENT [None]
  - CONVULSION [None]
  - NEOPLASM [None]
